FAERS Safety Report 9080818 (Version 1)
Quarter: 2013Q1

REPORT INFORMATION
  Report Type: Spontaneous
  Country: US (occurrence: US)
  Receive Date: 20130130
  Receipt Date: 20130130
  Transmission Date: 20140127
  Serious: No
  Sender: FDA-Public Use
  Company Number: US-ABBOTT-12P-163-0969933-00

PATIENT
  Sex: Female

DRUGS (1)
  1. HUMIRA 40 MG/ 0.8 ML PRE-FILLED SYRINGE [Suspect]
     Indication: PRODUCT USED FOR UNKNOWN INDICATION

REACTIONS (14)
  - Feeling abnormal [Unknown]
  - Swelling face [Unknown]
  - Swelling face [Unknown]
  - Pain [Unknown]
  - Pyrexia [Unknown]
  - Tooth infection [Unknown]
  - Gingival abscess [Unknown]
  - Face oedema [Unknown]
  - Localised oedema [Unknown]
  - Malaise [Unknown]
  - Abdominal pain upper [Unknown]
  - Vomiting [Unknown]
  - Urinary tract infection [Unknown]
  - Crohn^s disease [Unknown]
